FAERS Safety Report 9224381 (Version 1)
Quarter: 2013Q2

REPORT INFORMATION
  Report Type: Spontaneous
  Country: TH (occurrence: TH)
  Receive Date: 20130411
  Receipt Date: 20130411
  Transmission Date: 20140414
  Serious: Yes (Death, Hospitalization)
  Sender: FDA-Public Use
  Company Number: PHHY2013TH025136

PATIENT
  Age: 28 Year
  Sex: Male

DRUGS (1)
  1. GLIVEC [Suspect]
     Indication: CHRONIC MYELOID LEUKAEMIA
     Dosage: 400 MG
     Dates: start: 20130205

REACTIONS (4)
  - Epilepsy [Fatal]
  - Tonic convulsion [Fatal]
  - Headache [Fatal]
  - Delirium [Fatal]
